FAERS Safety Report 8314918-0 (Version None)
Quarter: 2012Q2

REPORT INFORMATION
  Report Type: 
  Country: None (occurrence: None)
  Receive Date: 20120426
  Receipt Date: 20120418
  Transmission Date: 20120825
  Serious: Yes (Hospitalization)
  Sender: FDA-Public Use
  Company Number: CA-JNJFOC-20120407948

PATIENT
  Sex: Male
  Weight: 72 kg

DRUGS (6)
  1. REMICADE [Suspect]
     Indication: CROHN'S DISEASE
     Dosage: 8/52 (UNITS UNSPECIFIED)
     Route: 042
  2. FENTANYL [Concomitant]
     Route: 065
  3. PANTOPRAZOLE SODIUM [Concomitant]
     Route: 065
  4. ZOPICLONE [Concomitant]
     Route: 065
  5. DIAZEPAM [Concomitant]
     Dosage: 15MG IN MORNING/ 20MG AT NIGHT
     Route: 065
  6. CYMBALTA [Concomitant]
     Route: 065

REACTIONS (3)
  - PANIC ATTACK [None]
  - HAEMOPTYSIS [None]
  - INFLAMMATION [None]
